FAERS Safety Report 14764550 (Version 3)
Quarter: 2019Q3

REPORT INFORMATION
  Report Type: Spontaneous
  Country: US (occurrence: US)
  Receive Date: 20180416
  Receipt Date: 20190724
  Transmission Date: 20191004
  Serious: Yes (Other)
  Sender: FDA-Public Use
  Company Number: US-SA-2018SA109141

PATIENT
  Sex: Male

DRUGS (2)
  1. REPATHA [Concomitant]
     Active Substance: EVOLOCUMAB
     Dosage: UNK UNK,UNK
     Route: 065
  2. PRALUENT [Suspect]
     Active Substance: ALIROCUMAB
     Dosage: 150 MG/ML, UNK
     Route: 058
     Dates: start: 20180115

REACTIONS (4)
  - Myalgia [Unknown]
  - Diabetes mellitus inadequate control [Unknown]
  - Low density lipoprotein increased [Unknown]
  - Drug ineffective [Unknown]
